FAERS Safety Report 22621350 (Version 2)
Quarter: 2023Q2

REPORT INFORMATION
  Report Type: Spontaneous
  Country: JP (occurrence: JP)
  Receive Date: 20230620
  Receipt Date: 20230629
  Transmission Date: 20230721
  Serious: Yes (Other)
  Sender: FDA-Public Use
  Company Number: JP-MLMSERVICE-20230608-4333958-1

PATIENT
  Age: 70 Year
  Sex: Male

DRUGS (18)
  1. DOCETAXEL [Suspect]
     Active Substance: DOCETAXEL
     Indication: Tongue neoplasm malignant stage unspecified
     Dosage: 10 MG/M2(A TOTAL OF 60 MG/M2 DURING THE WHOLE TREATMENT COURSE/INJECTED AS A SLOW BOLUS OVER 1 H)
     Route: 065
  2. DOCETAXEL [Suspect]
     Active Substance: DOCETAXEL
     Indication: Squamous cell carcinoma of the oral cavity
  3. DOCETAXEL [Suspect]
     Active Substance: DOCETAXEL
     Indication: Metastases to lymph nodes
  4. DOCETAXEL [Suspect]
     Active Substance: DOCETAXEL
     Indication: Lip neoplasm malignant stage unspecified
  5. CETUXIMAB [Suspect]
     Active Substance: CETUXIMAB
     Indication: Squamous cell carcinoma of the oral cavity
     Dosage: SEVEN TIMES (400 MG/M2 AS AN INITIAL DOSE, FOLLOWED BY 250 MG/M2, IN WEEK 2?7
     Route: 042
  6. CETUXIMAB [Suspect]
     Active Substance: CETUXIMAB
     Indication: Metastases to lymph nodes
     Dosage: SEVEN TIMES (400 MG/M2 AS AN INITIAL DOSE, FOLLOWED BY 250 MG/M2, IN WEEK 2?7
     Route: 042
  7. CETUXIMAB [Suspect]
     Active Substance: CETUXIMAB
     Indication: Lip neoplasm malignant stage unspecified
  8. CETUXIMAB [Suspect]
     Active Substance: CETUXIMAB
     Indication: Tongue neoplasm malignant stage unspecified
  9. CISPLATIN [Suspect]
     Active Substance: CISPLATIN
     Indication: Tongue neoplasm malignant stage unspecified
     Dosage: 5 MG/M2(A TOTAL OF 150 MG/M2/INJECTED AS A SLOW BOLUS OVER 1 H) (TOTAL: 150 MG/M2) 6 WEEKS
     Route: 013
  10. CISPLATIN [Suspect]
     Active Substance: CISPLATIN
     Indication: Lip neoplasm malignant stage unspecified
  11. CISPLATIN [Suspect]
     Active Substance: CISPLATIN
     Indication: Squamous cell carcinoma of the oral cavity
  12. CISPLATIN [Suspect]
     Active Substance: CISPLATIN
     Indication: Metastases to lymph nodes
  13. SODIUM THIOSULFATE [Concomitant]
     Active Substance: SODIUM THIOSULFATE
     Indication: Lip neoplasm malignant stage unspecified
     Dosage: 1 G/M2
     Route: 042
  14. SODIUM THIOSULFATE [Concomitant]
     Active Substance: SODIUM THIOSULFATE
     Indication: Squamous cell carcinoma of the oral cavity
  15. SODIUM THIOSULFATE [Concomitant]
     Active Substance: SODIUM THIOSULFATE
     Indication: Metastases to lymph nodes
  16. SODIUM THIOSULFATE [Concomitant]
     Active Substance: SODIUM THIOSULFATE
     Indication: Tongue neoplasm malignant stage unspecified
  17. INDIGOTINDISULFONATE SODIUM [Concomitant]
     Active Substance: INDIGOTINDISULFONATE SODIUM
     Dosage: UNK UNK, QW
  18. CORTICOSTEROID NOS [Concomitant]
     Active Substance: CORTICOSTEROID NOS
     Indication: Premedication
     Dosage: UNK

REACTIONS (3)
  - Cheilitis [Unknown]
  - Stomatitis [Unknown]
  - Radiation skin injury [Unknown]
